FAERS Safety Report 4718408-3 (Version None)
Quarter: 2005Q3

REPORT INFORMATION
  Report Type: 
  Country: None (occurrence: None)
  Receive Date: 20050719
  Receipt Date: 20050201
  Transmission Date: 20060218
  Serious: Yes (Hospitalization, Other)
  Sender: FDA-Public Use
  Company Number: 2005006831

PATIENT
  Age: 66 Year
  Sex: Male
  Weight: 72.5755 kg

DRUGS (3)
  1. CELEBREX [Suspect]
     Indication: ARTHRALGIA
     Dosage: ORAL
     Route: 048
     Dates: start: 20040501
  2. ACE INHIBITOR NOS (ACE INHIBITOR NOS) [Concomitant]
  3. NAPROXEN [Concomitant]

REACTIONS (1)
  - CEREBROVASCULAR ACCIDENT [None]
